FAERS Safety Report 14750778 (Version 1)
Quarter: 2018Q2

REPORT INFORMATION
  Report Type: Report from Study
  Country: JP (occurrence: JP)
  Receive Date: 20180412
  Receipt Date: 20180412
  Transmission Date: 20180711
  Serious: Yes (Hospitalization, Other)
  Sender: FDA-Public Use
  Company Number: JP-ROCHE-1792221

PATIENT
  Age: 63 Year
  Sex: Male

DRUGS (3)
  1. BEVACIZUMAB. [Suspect]
     Active Substance: BEVACIZUMAB
     Indication: NON-SMALL CELL LUNG CANCER
     Route: 041
     Dates: start: 20160428
  2. PEMETREXED SODIUM HYDRATE [Suspect]
     Active Substance: PEMETREXED
     Indication: NON-SMALL CELL LUNG CANCER
     Route: 041
     Dates: start: 20160428
  3. CISPLATIN. [Suspect]
     Active Substance: CISPLATIN
     Indication: NON-SMALL CELL LUNG CANCER
     Route: 041
     Dates: start: 20160428

REACTIONS (3)
  - Hypokalaemia [Recovered/Resolved]
  - Syncope [Recovered/Resolved with Sequelae]
  - Urinary retention [Recovering/Resolving]

NARRATIVE: CASE EVENT DATE: 20160518
